FAERS Safety Report 9245347 (Version 2)
Quarter: 2013Q2

REPORT INFORMATION
  Report Type: Spontaneous
  Country: US (occurrence: US)
  Receive Date: 20130422
  Receipt Date: 20130604
  Transmission Date: 20140414
  Serious: Yes (Other)
  Sender: FDA-Public Use
  Company Number: US-PFIZER INC-2013121197

PATIENT
  Age: 81 Year
  Sex: Male
  Weight: 63.49 kg

DRUGS (3)
  1. VIAGRA [Suspect]
     Indication: LIBIDO DECREASED
     Dosage: SPLITTING 100 MG TABLET INTO 3 OR 4 PIECES TWICE WEEKLY AS NEEDED
  2. LEVITRA [Concomitant]
     Indication: LIBIDO DECREASED
     Dosage: UNK
  3. CIALIS [Concomitant]
     Indication: LIBIDO DECREASED
     Dosage: UNK

REACTIONS (4)
  - Palpitations [Unknown]
  - Erythema [Unknown]
  - Discomfort [Unknown]
  - Blood cholesterol increased [Unknown]
